FAERS Safety Report 9805664 (Version 3)
Quarter: 2014Q2

REPORT INFORMATION
  Report Type: Spontaneous
  Country: US (occurrence: US)
  Receive Date: 20140109
  Receipt Date: 20140501
  Transmission Date: 20141212
  Serious: Yes (Other)
  Sender: FDA-Public Use
  Company Number: US-BAYER-2014-000719

PATIENT
  Age: 21 Year
  Sex: Female
  Weight: 84 kg

DRUGS (3)
  1. MIRENA [Suspect]
     Indication: MENSTRUATION IRREGULAR
     Dosage: 20 MCG/24HR, CONT
     Route: 015
     Dates: start: 20131104, end: 20131205
  2. MIRENA [Suspect]
     Indication: CONTRACEPTION
     Dosage: 20 ?G/D, CONT
     Route: 015
     Dates: start: 20140227, end: 20140417
  3. MIRENA [Suspect]
     Indication: MENORRHAGIA

REACTIONS (5)
  - Genital haemorrhage [None]
  - Off label use [None]
  - Device expulsion [Recovered/Resolved]
  - Coital bleeding [None]
  - Device expulsion [None]
